FAERS Safety Report 12641150 (Version 2)
Quarter: 2016Q3

REPORT INFORMATION
  Report Type: Report from Study
  Country: BR (occurrence: BR)
  Receive Date: 20160810
  Receipt Date: 20160811
  Transmission Date: 20161109
  Serious: Yes (Death)
  Sender: FDA-Public Use
  Company Number: PHHY2016BR109399

PATIENT
  Age: 89 Year
  Sex: Female
  Weight: 52 kg

DRUGS (3)
  1. NEOTIAPIM [Concomitant]
     Active Substance: QUETIAPINE
     Indication: EMOTIONAL DISORDER
     Dosage: 2 DF, QD
     Route: 048
     Dates: start: 201603
  2. EXELON PATCH [Suspect]
     Active Substance: RIVASTIGMINE
     Indication: ASTHENIA
  3. EXELON PATCH [Suspect]
     Active Substance: RIVASTIGMINE
     Indication: OXYGEN SATURATION DECREASED
     Dosage: QD
     Route: 062
     Dates: start: 2015

REACTIONS (2)
  - Product use issue [Unknown]
  - Cardiac arrest [Fatal]

NARRATIVE: CASE EVENT DATE: 2015
